FAERS Safety Report 25059705 (Version 1)
Quarter: 2025Q1

REPORT INFORMATION
  Report Type: Spontaneous
  Country: US (occurrence: None)
  Receive Date: 20250307
  Receipt Date: 20250307
  Transmission Date: 20250409
  Serious: No
  Sender: FDA-CTU
  Company Number: None

PATIENT
  Age: 28 Year
  Sex: Female

DRUGS (1)
  1. AMPICILLIN [Suspect]
     Active Substance: AMPICILLIN

REACTIONS (3)
  - Erythema [None]
  - Erythema [None]
  - Maternal exposure during pregnancy [None]

NARRATIVE: CASE EVENT DATE: 20250101
